FAERS Safety Report 23851745 (Version 2)
Quarter: 2024Q4

REPORT INFORMATION
  Report Type: Spontaneous
  Country: CA (occurrence: CA)
  Receive Date: 20240514
  Receipt Date: 20241029
  Transmission Date: 20250115
  Serious: Yes (Other)
  Sender: NOVARTIS
  Company Number: CA-SANDOZ-SDZ2024CA047663

PATIENT
  Age: 71 Year
  Sex: Male

DRUGS (5)
  1. CARBAMAZEPINE [Interacting]
     Active Substance: CARBAMAZEPINE
     Indication: Epilepsy
     Dosage: 600 MG, QD
     Route: 065
  2. APIXABAN [Interacting]
     Active Substance: APIXABAN
     Indication: Atrial fibrillation
     Dosage: 10 MG, QD (5 MG, BID)
     Route: 048
  3. APIXABAN [Interacting]
     Active Substance: APIXABAN
     Dosage: 100 MG, QD (1 EVERY 1 DAYS)
     Route: 048
  4. RIVAROXABAN [Interacting]
     Active Substance: RIVAROXABAN
     Indication: Embolism venous
     Dosage: 20 MG
     Route: 048
  5. PHENYTOIN [Interacting]
     Active Substance: PHENYTOIN
     Indication: Epilepsy
     Dosage: 300 MG
     Route: 065

REACTIONS (3)
  - Cerebrovascular accident [Unknown]
  - Drug interaction [Unknown]
  - Deep vein thrombosis [Unknown]
